FAERS Safety Report 26180471 (Version 1)
Quarter: 2025Q4

REPORT INFORMATION
  Report Type: Spontaneous
  Country: EU (occurrence: EU)
  Receive Date: 20251219
  Receipt Date: 20251219
  Transmission Date: 20260118
  Serious: Yes (Other)
  Sender: TEVA
  Company Number: None

PATIENT
  Age: 60 Year
  Sex: Female
  Weight: 74 kg

DRUGS (7)
  1. RAMIPRIL [Suspect]
     Active Substance: RAMIPRIL
     Indication: Hypertension
     Route: 048
     Dates: start: 20251024
  2. TACROLIMUS [Suspect]
     Active Substance: TACROLIMUS
     Indication: Lung transplant
     Route: 048
     Dates: start: 20251024
  3. VALGANCICLOVIR [Suspect]
     Active Substance: VALGANCICLOVIR
     Indication: Opportunistic infection prophylaxis
     Route: 042
     Dates: start: 20251013, end: 20251028
  4. VALGANCICLOVIR [Suspect]
     Active Substance: VALGANCICLOVIR
     Indication: Opportunistic infection prophylaxis
     Route: 048
     Dates: start: 20251028
  5. CEFOTAXIME [Suspect]
     Active Substance: CEFOTAXIME SODIUM
     Indication: Gastroenteritis Escherichia coli
     Dosage: CEFOTAXIME BASE
     Route: 042
     Dates: start: 20251014, end: 20251022
  6. CELLCEPT [Suspect]
     Active Substance: MYCOPHENOLATE MOFETIL
     Indication: Lung transplant
     Route: 048
     Dates: start: 20251007
  7. PROGRAF [Suspect]
     Active Substance: TACROLIMUS
     Indication: Lung transplant
     Dosage: SOLUTION FOR INFUSION (TO BE DILUTED)
     Route: 042
     Dates: start: 20251007, end: 20251024

REACTIONS (2)
  - Hepatocellular injury [Not Recovered/Not Resolved]
  - Cholestatic liver injury [Not Recovered/Not Resolved]

NARRATIVE: CASE EVENT DATE: 20251020
